FAERS Safety Report 7536297-9 (Version None)
Quarter: 2011Q2

REPORT INFORMATION
  Report Type: 
  Country: None (occurrence: None)
  Receive Date: 20110608
  Receipt Date: 20110608
  Transmission Date: 20111010
  Serious: Yes (Other)
  Sender: FDA-Public Use
  Company Number: None

PATIENT
  Age: 70 Year
  Sex: Male

DRUGS (1)
  1. TARCEVA [Suspect]
     Dosage: 150 MG 1QD PO EXISTING BEFORE 5-19-11
     Route: 048
     Dates: start: 20110519

REACTIONS (9)
  - HAEMATOCHEZIA [None]
  - RASH MACULAR [None]
  - CONTUSION [None]
  - ABDOMINAL PAIN UPPER [None]
  - DYSPNOEA [None]
  - MUSCLE SPASMS [None]
  - PRODUCTIVE COUGH [None]
  - HEADACHE [None]
  - COUGH [None]
